FAERS Safety Report 6256154-8 (Version None)
Quarter: 2009Q3

REPORT INFORMATION
  Report Type: 
  Country: None (occurrence: None)
  Receive Date: 20090706
  Receipt Date: 20090623
  Transmission Date: 20100115
  Serious: Yes (Other)
  Sender: FDA-Public Use
  Company Number: PHHY2009BR25797

PATIENT
  Sex: Female

DRUGS (2)
  1. EXELON [Suspect]
     Dosage: 9MG/5CM2
     Route: 062
  2. EXELON [Suspect]
     Dosage: 18MG/10CM2
     Route: 062

REACTIONS (3)
  - DERMATITIS CONTACT [None]
  - HYPERSENSITIVITY [None]
  - URTICARIA [None]
